FAERS Safety Report 8131347-3 (Version None)
Quarter: 2012Q1

REPORT INFORMATION
  Report Type: 
  Country: None (occurrence: None)
  Receive Date: 20120213
  Receipt Date: 20120203
  Transmission Date: 20120608
  Serious: Yes (Other)
  Sender: FDA-Public Use
  Company Number: US-BRISTOL-MYERS SQUIBB COMPANY-16362873

PATIENT
  Age: 82 Year
  Sex: Female
  Weight: 72 kg

DRUGS (3)
  1. ORENCIA [Suspect]
     Indication: RHEUMATOID ARTHRITIS
     Dosage: ORENICA IV INF FOR 2 YEARS
     Route: 058
     Dates: start: 20111224
  2. MOBIC [Concomitant]
  3. METHOTREXATE [Concomitant]

REACTIONS (2)
  - ARTHROPATHY [None]
  - DRUG INEFFECTIVE [None]
